FAERS Safety Report 7705324-8 (Version None)
Quarter: 2011Q3

REPORT INFORMATION
  Report Type: 
  Country: None (occurrence: None)
  Receive Date: 20110824
  Receipt Date: 20110810
  Transmission Date: 20111222
  Serious: Yes (Other)
  Sender: FDA-Public Use
  Company Number: US-MYLANLABS-2011S1016647

PATIENT
  Age: 61 Year
  Sex: Female

DRUGS (2)
  1. VANCOMYCIN HCL [Suspect]
     Indication: PNEUMONIA
     Route: 065
  2. ZOSYN [Concomitant]
     Indication: PNEUMONIA
     Route: 065

REACTIONS (4)
  - LEUKOCYTOCLASTIC VASCULITIS [None]
  - ANTIBIOTIC LEVEL ABOVE THERAPEUTIC [None]
  - POLYARTERITIS NODOSA [None]
  - BLOOD CREATININE INCREASED [None]
